FAERS Safety Report 4365759-0 (Version None)
Quarter: 2004Q2

REPORT INFORMATION
  Report Type: 
  Country: None (occurrence: None)
  Receive Date: 20040520
  Receipt Date: 20040506
  Transmission Date: 20050107
  Serious: Yes (Life-Threatening)
  Sender: FDA-Public Use
  Company Number: 2004EU000954

PATIENT
  Age: 18 Year
  Sex: Male

DRUGS (3)
  1. FK506 (TACROLIMUS) FORMULATION UNKNOWN [Suspect]
     Indication: RENAL TRANSPLANT
     Dosage: UNK
     Dates: start: 20011101
  2. CHIMAERIC CD25 () [Suspect]
     Dates: start: 20011101
  3. CORTICOSTEROIDS [Concomitant]

REACTIONS (3)
  - EPILEPSY [None]
  - RENAL FAILURE ACUTE [None]
  - RHABDOMYOLYSIS [None]
